FAERS Safety Report 5165463-5 (Version None)
Quarter: 2006Q4

REPORT INFORMATION
  Report Type: 
  Country: None (occurrence: None)
  Receive Date: 20061206
  Receipt Date: 20061004
  Transmission Date: 20070319
  Serious: Yes (Disabling)
  Sender: FDA-Public Use
  Company Number: PHRM2006FR02771

PATIENT
  Age: 61 Year
  Sex: Male
  Weight: 82 kg

DRUGS (2)
  1. ENANTONE - SLOW RELEASE [Concomitant]
     Indication: PROSTATE CANCER METASTATIC
     Dosage: UNK, UNK
     Dates: start: 20040101
  2. ZOMETA [Suspect]
     Indication: METASTASES TO BONE
     Dosage: 4 MG, QMO
     Route: 042
     Dates: start: 20040101, end: 20060613

REACTIONS (4)
  - GINGIVAL PAIN [None]
  - OSTEOLYSIS [None]
  - OSTEONECROSIS [None]
  - TOOTHACHE [None]
